FAERS Safety Report 24649814 (Version 1)
Quarter: 2024Q4

REPORT INFORMATION
  Report Type: Spontaneous
  Country: BR (occurrence: BR)
  Receive Date: 20241121
  Receipt Date: 20241121
  Transmission Date: 20250115
  Serious: Yes (Other)
  Sender: JOHNSON AND JOHNSON
  Company Number: BR-JNJFOC-20241134952

PATIENT
  Age: 60 Year
  Sex: Female

DRUGS (2)
  1. GOLIMUMAB [Suspect]
     Active Substance: GOLIMUMAB
     Indication: Rheumatoid arthritis
     Route: 041
     Dates: start: 202407
  2. GOLIMUMAB [Suspect]
     Active Substance: GOLIMUMAB

REACTIONS (5)
  - Infection [Recovering/Resolving]
  - Erythema nodosum [Not Recovered/Not Resolved]
  - Alopecia [Not Recovered/Not Resolved]
  - Mouth ulceration [Unknown]
  - Genital lesion [Unknown]

NARRATIVE: CASE EVENT DATE: 20240101
